FAERS Safety Report 25237047 (Version 2)
Quarter: 2025Q2

REPORT INFORMATION
  Report Type: Report from Study
  Country: US (occurrence: US)
  Receive Date: 20250424
  Receipt Date: 20250613
  Transmission Date: 20250716
  Serious: Yes (Other)
  Sender: ABBVIE
  Company Number: US-ABBVIE-6239558

PATIENT
  Sex: Female

DRUGS (1)
  1. RINVOQ [Suspect]
     Active Substance: UPADACITINIB
     Indication: Product used for unknown indication
     Route: 048

REACTIONS (7)
  - Cervical vertebral fracture [Unknown]
  - Arthralgia [Unknown]
  - Cerebrovascular accident [Unknown]
  - Post procedural complication [Unknown]
  - Feeding disorder [Recovering/Resolving]
  - Diabetes mellitus [Unknown]
  - Dysphagia [Recovering/Resolving]
